FAERS Safety Report 7801488-6 (Version None)
Quarter: 2011Q4

REPORT INFORMATION
  Report Type: 
  Country: None (occurrence: None)
  Receive Date: 20111007
  Receipt Date: 20110927
  Transmission Date: 20120403
  Serious: Yes (Other)
  Sender: FDA-Public Use
  Company Number: LB-JNJFOC-20110912120

PATIENT
  Age: 48 Year
  Sex: Male

DRUGS (1)
  1. REMICADE [Suspect]
     Indication: ANKYLOSING SPONDYLITIS
     Route: 042
     Dates: start: 20070701, end: 20110601

REACTIONS (3)
  - HEPATIC ENZYME INCREASED [None]
  - RENAL CELL CARCINOMA [None]
  - ANKYLOSING SPONDYLITIS [None]
